FAERS Safety Report 9719259 (Version 1)
Quarter: 2013Q4

REPORT INFORMATION
  Report Type: Report from Study
  Country: MX (occurrence: MX)
  Receive Date: 20131127
  Receipt Date: 20131127
  Transmission Date: 20140711
  Serious: Yes (Other)
  Sender: FDA-Public Use
  Company Number: PHHY2013MX136505

PATIENT
  Age: 71 Year
  Sex: Female
  Weight: 70 kg

DRUGS (4)
  1. ACLASTA [Suspect]
     Indication: OSTEOPOROSIS
     Dosage: 5 MG/100ML ANNUALLY
     Route: 042
     Dates: start: 201012
  2. ACLASTA [Suspect]
     Dosage: 5 MG/100ML ANNUALLY
     Route: 042
     Dates: start: 201112
  3. ACLASTA [Suspect]
     Dosage: 5 MG/100ML ANNUALLY
     Route: 042
     Dates: start: 201212
  4. HOMEOPATHIC PREPARATIONS [Concomitant]
     Dosage: UNK UKN, UNK

REACTIONS (7)
  - Sjogren^s syndrome [Not Recovered/Not Resolved]
  - Osteoarthritis [Not Recovered/Not Resolved]
  - Fall [Not Recovered/Not Resolved]
  - Bone pain [Not Recovered/Not Resolved]
  - Osteoporosis [Not Recovered/Not Resolved]
  - Drug ineffective [Unknown]
  - Wrong technique in drug usage process [Unknown]
